FAERS Safety Report 5044096-5 (Version None)
Quarter: 2006Q3

REPORT INFORMATION
  Report Type: 
  Country: None (occurrence: None)
  Receive Date: 20060706
  Receipt Date: 20060626
  Transmission Date: 20061208
  Serious: Yes (Hospitalization, Other)
  Sender: FDA-Public Use
  Company Number: US-JNJFOC-20060300076

PATIENT
  Sex: Female
  Weight: 92.99 kg

DRUGS (10)
  1. REMICADE [Suspect]
     Indication: RHEUMATOID ARTHRITIS
     Route: 042
  2. TRAZODONE HCL [Concomitant]
     Indication: RHEUMATOID ARTHRITIS
  3. ACTOSE [Concomitant]
     Indication: RHEUMATOID ARTHRITIS
  4. GLIPIZIDE [Concomitant]
     Indication: RHEUMATOID ARTHRITIS
  5. NEXIUM [Concomitant]
     Indication: RHEUMATOID ARTHRITIS
  6. PLAQUINEL [Concomitant]
     Indication: RHEUMATOID ARTHRITIS
  7. PREDNISONE TAB [Concomitant]
     Indication: RHEUMATOID ARTHRITIS
  8. METHATREXATE [Concomitant]
     Indication: RHEUMATOID ARTHRITIS
  9. LIPITOR [Concomitant]
     Indication: RHEUMATOID ARTHRITIS
  10. LISINOPRIL [Concomitant]
     Indication: RHEUMATOID ARTHRITIS

REACTIONS (2)
  - COLON CANCER [None]
  - RECTAL CANCER [None]
